FAERS Safety Report 7204849-1 (Version None)
Quarter: 2010Q4

REPORT INFORMATION
  Report Type: 
  Country: None (occurrence: None)
  Receive Date: 20101230
  Receipt Date: 20101206
  Transmission Date: 20110411
  Serious: No
  Sender: FDA-Public Use
  Company Number: US-PFIZER INC-US-WYE-H17166710

PATIENT
  Sex: Female
  Weight: 73.9 kg

DRUGS (2)
  1. PREMARIN [Suspect]
     Indication: VULVOVAGINAL DRYNESS
     Dosage: 1/2 TO 3/4 IF AN INCH 3 TIMES PER WEEK
     Route: 067
     Dates: start: 20100523, end: 20100607
  2. PREMARIN [Suspect]
     Dosage: 1/2 TO 3/4 IF AN INCH 3 TIMES PER WEEK
     Route: 067
     Dates: start: 20100622

REACTIONS (5)
  - ABDOMINAL PAIN [None]
  - ERYTHEMA [None]
  - PAPULE [None]
  - PRURITUS [None]
  - URINE ODOUR ABNORMAL [None]
